FAERS Safety Report 8934808 (Version 1)
Quarter: 2012Q4

REPORT INFORMATION
  Report Type: 
  Country: US (occurrence: US)
  Receive Date: 20121129
  Receipt Date: 20121129
  Transmission Date: 20130627
  Serious: No
  Sender: FDA-Public Use
  Company Number: US-BAYER-2012-118418

PATIENT
  Age: 39 Year
  Sex: Female

DRUGS (1)
  1. MIRENA [Suspect]
     Indication: CONTRACEPTION
     Dosage: 20 mcg/24hr, CONT
     Route: 015
     Dates: start: 200708, end: 201209

REACTIONS (7)
  - Incorrect drug administration duration [None]
  - Adverse event [None]
  - Burning sensation [None]
  - Blood pressure increased [None]
  - Dyspnoea [None]
  - Dry mouth [None]
  - Anxiety [None]
